FAERS Safety Report 7298963-2 (Version None)
Quarter: 2011Q1

REPORT INFORMATION
  Report Type: 
  Country: None (occurrence: None)
  Receive Date: 20110217
  Receipt Date: 20110208
  Transmission Date: 20110831
  Serious: Yes (Death, Life-Threatening, Hospitalization, Disabling)
  Sender: FDA-Public Use
  Company Number: US-JNJFOC-20101101010

PATIENT
  Sex: Male
  Weight: 65.9 kg

DRUGS (8)
  1. ASPIRIN [Concomitant]
     Route: 048
  2. USTEKINUMAB [Suspect]
     Route: 058
  3. PLACEBO [Suspect]
     Indication: PSORIASIS
     Route: 058
  4. PLACEBO [Suspect]
     Route: 058
  5. USTEKINUMAB [Suspect]
     Indication: PSORIASIS
     Route: 058
  6. BENADRYL [Concomitant]
     Route: 048
  7. AMOXICILLIN [Concomitant]
     Route: 048
  8. FENOPROFEN CALCIUM [Concomitant]
     Route: 048

REACTIONS (4)
  - ALCOHOL WITHDRAWAL SYNDROME [None]
  - SMALL CELL LUNG CANCER STAGE UNSPECIFIED [None]
  - CONVULSION [None]
  - HYPONATRAEMIA [None]
